FAERS Safety Report 9233782 (Version 1)
Quarter: 2013Q2

REPORT INFORMATION
  Report Type: Spontaneous
  Country: US (occurrence: US)
  Receive Date: 20130416
  Receipt Date: 20130416
  Transmission Date: 20140414
  Serious: No
  Sender: FDA-Public Use
  Company Number: US-BANPHARM-20131067

PATIENT
  Sex: Male

DRUGS (1)
  1. NAPROXEN SODIUM 220MG [Suspect]
     Dosage: PRN,
     Route: 048
     Dates: start: 20120702, end: 20120705

REACTIONS (2)
  - Drug effect decreased [Unknown]
  - Therapeutic response unexpected with drug substitution [Unknown]
